FAERS Safety Report 8612281-9 (Version None)
Quarter: 2012Q3

REPORT INFORMATION
  Report Type: 
  Country: None (occurrence: None)
  Receive Date: 20120822
  Receipt Date: 20120815
  Transmission Date: 20120928
  Serious: Yes (Hospitalization)
  Sender: FDA-Public Use
  Company Number: US-PFIZER INC-2012201118

PATIENT
  Age: 49 Year
  Sex: Female
  Weight: 64.1 kg

DRUGS (3)
  1. DOXORUBICIN HCL [Suspect]
     Indication: SOFT TISSUE NEOPLASM
     Dosage: 75 MG/M2, UNK
     Route: 042
     Dates: start: 20120228
  2. DEXRAZOXANE [Suspect]
     Indication: SOFT TISSUE NEOPLASM
     Dosage: 750 MG/M2, UNK
     Route: 042
     Dates: start: 20120525
  3. FENTANYL [Concomitant]

REACTIONS (2)
  - URINARY TRACT INFECTION [None]
  - FEBRILE NEUTROPENIA [None]
